FAERS Safety Report 25973995 (Version 1)
Quarter: 2025Q4

REPORT INFORMATION
  Report Type: Spontaneous
  Country: US (occurrence: US)
  Receive Date: 20251029
  Receipt Date: 20251029
  Transmission Date: 20260117
  Serious: No
  Sender: MYLAN
  Company Number: US-MYLANLABS-2025M1089382

PATIENT
  Sex: Male

DRUGS (1)
  1. BREYNA [Suspect]
     Active Substance: BUDESONIDE\FORMOTEROL FUMARATE
     Indication: Product used for unknown indication
     Dosage: UNK

REACTIONS (2)
  - Wrong technique in device usage process [Unknown]
  - Device malfunction [Unknown]

NARRATIVE: CASE EVENT DATE: 20250101
